FAERS Safety Report 12611502 (Version 2)
Quarter: 2016Q3

REPORT INFORMATION
  Report Type: Report from Study
  Country: BE (occurrence: BE)
  Receive Date: 20160801
  Receipt Date: 20160801
  Transmission Date: 20161109
  Serious: Yes (Other)
  Sender: FDA-Public Use
  Company Number: BE-ASCEND THERAPEUTICS-1055740

PATIENT
  Age: 53 Year

DRUGS (2)
  1. CYPROTERONE ACETATE [Concomitant]
     Active Substance: CYPROTERONE ACETATE
     Route: 048
  2. ESTROGEL [Suspect]
     Active Substance: ESTRADIOL
     Indication: TRANS-SEXUALISM
     Route: 062

REACTIONS (4)
  - Intraductal proliferative breast lesion [None]
  - Breast cancer recurrent [None]
  - Intraductal proliferative breast lesion [Unknown]
  - Hyperprolactinaemia [Unknown]
